FAERS Safety Report 17442582 (Version 1)
Quarter: 2020Q1

REPORT INFORMATION
  Report Type: Spontaneous
  Country: US (occurrence: US)
  Receive Date: 20200220
  Receipt Date: 20200220
  Transmission Date: 20200409
  Serious: No
  Sender: FDA-Public Use
  Company Number: US-009507513-2002USA002560

PATIENT
  Age: 58 Year
  Sex: Male

DRUGS (3)
  1. PROVENTIL [Suspect]
     Active Substance: ALBUTEROL
     Indication: WHEEZING
     Dosage: 2 PUFFS EVERY 4-6 HOURS
     Dates: start: 20191216, end: 20200125
  2. SYMBICORT [Concomitant]
     Active Substance: BUDESONIDE\FORMOTEROL FUMARATE DIHYDRATE
     Dosage: UNK
  3. AUBAGIO [Concomitant]
     Active Substance: TERIFLUNOMIDE
     Dosage: UNK

REACTIONS (3)
  - Product dose omission [Unknown]
  - Poor quality device used [Unknown]
  - Product quality issue [Unknown]

NARRATIVE: CASE EVENT DATE: 20200105
